FAERS Safety Report 7293077-X (Version None)
Quarter: 2011Q1

REPORT INFORMATION
  Report Type: 
  Country: None (occurrence: None)
  Receive Date: 20110215
  Receipt Date: 20110201
  Transmission Date: 20110831
  Serious: No
  Sender: FDA-Public Use
  Company Number: US-BAYER-2011-011635

PATIENT
  Age: 67 Year
  Sex: Female
  Weight: 63 kg

DRUGS (4)
  1. ZYRTEC [Concomitant]
     Dosage: 1 DF, QD
     Route: 048
  2. ALEVE (CAPLET) [Suspect]
     Indication: ARTHRITIS
     Dosage: 1 DF, QD
     Route: 048
     Dates: start: 20110101
  3. COZAAR [Concomitant]
     Dosage: 25 MG, QD
     Route: 048
  4. ACIPHEX [Concomitant]
     Dosage: 20 MG, BID
     Route: 048

REACTIONS (2)
  - MUSCLE SPASMS [None]
  - NAUSEA [None]
